FAERS Safety Report 9239320 (Version 1)
Quarter: 2013Q2

REPORT INFORMATION
  Report Type: Report from Study
  Country: US (occurrence: US)
  Receive Date: 20130418
  Receipt Date: 20130418
  Transmission Date: 20140414
  Serious: Yes (Other)
  Sender: FDA-Public Use
  Company Number: US-B.I. PHARMACEUTICALS,INC./RIDGEFIELD-2013-BI-10426GD

PATIENT
  Sex: Male

DRUGS (5)
  1. PRADAXA [Suspect]
     Indication: ATRIAL FIBRILLATION
     Dosage: 150 MG
  2. PRADAXA [Suspect]
     Dosage: 300 MG
  3. UNFRACTIONATED HEPARIN [Suspect]
     Indication: ANTICOAGULANT THERAPY
     Dosage: BOLUS (80-150 UNITS/KG) BEFORE TRANSSEPTAL PUNCTURE
  4. UNFRACTIONATED HEPARIN [Suspect]
     Dosage: CONTINUOUS INFUSION AND ADDITIONAL BOLUSES AS NEEDED TO TARGET AN ACT OF 350-450 SECONDS DURING THE
     Route: 042
  5. ASPIRIN [Suspect]
     Dosage: 325 MG

REACTIONS (2)
  - Pulmonary embolism [Unknown]
  - Pleuritic pain [Unknown]
